FAERS Safety Report 16559679 (Version 1)
Quarter: 2019Q3

REPORT INFORMATION
  Report Type: Spontaneous
  Country: DE (occurrence: DE)
  Receive Date: 20190711
  Receipt Date: 20190711
  Transmission Date: 20191004
  Serious: Yes (Hospitalization)
  Sender: FDA-Public Use
  Company Number: DE-SA-2019SA184178

PATIENT
  Age: 78 Year
  Sex: Female

DRUGS (5)
  1. ATROVENT [Concomitant]
     Active Substance: IPRATROPIUM BROMIDE
     Dosage: NK MG, 6-0-6-0 DROPS
     Route: 055
  2. LEVODOPA [Concomitant]
     Active Substance: LEVODOPA
     Dosage: 100|25 MG, 0.5-0.5-0.5-0.5
  3. VIANI [Concomitant]
     Active Substance: FLUTICASONE PROPIONATE\SALMETEROL XINAFOATE
     Dosage: NK ?G, 1-1-1-0
  4. PROCORALAN [Concomitant]
     Active Substance: IVABRADINE
     Dosage: 5 MG, QD 1-0-0-0
  5. PLAVIX [Suspect]
     Active Substance: CLOPIDOGREL BISULFATE
     Indication: PRODUCT USED FOR UNKNOWN INDICATION
     Dosage: 75 MG, QD 1-0-0-0

REACTIONS (2)
  - Anaemia [Unknown]
  - Asthenia [Unknown]
